FAERS Safety Report 10234196 (Version 1)
Quarter: 2014Q1

REPORT INFORMATION
  Report Type: Spontaneous
  Country: US (occurrence: None)
  Receive Date: 20140306
  Receipt Date: 20140306
  Transmission Date: 20141002
  Serious: Yes (Hospitalization, Other)
  Sender: FDA-Public Use
  Company Number: 163-21880-13053078

PATIENT
  Age: 78 Year
  Sex: Female
  Weight: 66.23 kg

DRUGS (10)
  1. REVLIMID (LENALIDOMIDE) (10 MILLIGRAM, CAPSULES) [Suspect]
     Indication: MYELODYSPLASTIC SYNDROME
     Route: 048
     Dates: start: 20130425, end: 20130509
  2. SINGULAIR (MONTELUKAST SODIUM) TABLET [Concomitant]
  3. SYNTHROID (LEVOTHYROXINE SODIUM) [Concomitant]
  4. ATENOLOL (ATENOLOL) [Concomitant]
  5. GABAPENTIN (GABAPENTIN) [Concomitant]
  6. CRESTOR (ROSUVASTATIN) [Concomitant]
  7. ASPIRINE (ACETYLSALICYLIC ACID) [Concomitant]
  8. FISH OIL (FISH OIL) [Concomitant]
  9. METHYLPREDNISOLONE (METHYLPREDNISOLONE) [Concomitant]
  10. ARANESP (DARBEPOETIN ALFA) [Concomitant]

REACTIONS (12)
  - Haemoglobin decreased [None]
  - Blood iron decreased [None]
  - Dry skin [None]
  - Erythema [None]
  - Decreased appetite [None]
  - Diarrhoea [None]
  - Nervousness [None]
  - Drug intolerance [None]
  - Chills [None]
  - Feeling cold [None]
  - Tremor [None]
  - Asthenia [None]
